FAERS Safety Report 25571262 (Version 4)
Quarter: 2025Q3

REPORT INFORMATION
  Report Type: Spontaneous
  Country: SG (occurrence: SG)
  Receive Date: 20250717
  Receipt Date: 20250812
  Transmission Date: 20251021
  Serious: Yes (Other)
  Sender: EMD SERONO INC
  Company Number: SG-Merck Healthcare KGaA-2025034204

PATIENT
  Age: 39 Year
  Sex: Female

DRUGS (7)
  1. CETROTIDE [Suspect]
     Active Substance: CETRORELIX ACETATE
     Indication: Prevention of premature ovulation
     Dates: start: 20250612, end: 20250612
  2. GONAL-F [Suspect]
     Active Substance: FOLLITROPIN
     Indication: Product used for unknown indication
     Dates: start: 20250605, end: 20250612
  3. LUVERIS [Suspect]
     Active Substance: LUTROPIN ALFA
     Indication: Product used for unknown indication
     Dates: start: 20250605, end: 20250612
  4. DUPHASTON [Suspect]
     Active Substance: DYDROGESTERONE
     Indication: Product used for unknown indication
  5. AUGMENTIN [Suspect]
     Active Substance: AMOXICILLIN\CLAVULANATE POTASSIUM
     Indication: Prophylaxis
  6. FENTANYL [Suspect]
     Active Substance: FENTANYL
     Indication: Prophylaxis
     Dates: start: 20250618, end: 20250618
  7. PROPOFOL [Suspect]
     Active Substance: PROPOFOL
     Indication: Prophylaxis
     Dates: start: 20250618, end: 20250618

REACTIONS (6)
  - Cross sensitivity reaction [Unknown]
  - Superficial vein thrombosis [Recovering/Resolving]
  - Rash [Recovered/Resolved with Sequelae]
  - Injection site rash [Recovered/Resolved with Sequelae]
  - Anaphylactic reaction [Unknown]
  - Urticaria [Unknown]

NARRATIVE: CASE EVENT DATE: 20250612
